FAERS Safety Report 7535019-5 (Version None)
Quarter: 2011Q2

REPORT INFORMATION
  Report Type: 
  Country: None (occurrence: None)
  Receive Date: 20110609
  Receipt Date: 20110602
  Transmission Date: 20111010
  Serious: No
  Sender: FDA-Public Use
  Company Number: US-BIOGENIDEC-2011BI015488

PATIENT
  Age: 52 Year
  Sex: Female

DRUGS (4)
  1. TYSABRI [Suspect]
     Indication: MULTIPLE SCLEROSIS
     Route: 042
     Dates: start: 20090723
  2. AVONEX [Concomitant]
     Route: 030
     Dates: start: 20050318
  3. TOPAMAX [Concomitant]
     Indication: NEURALGIA
  4. AVONEX [Concomitant]
     Indication: MULTIPLE SCLEROSIS
     Route: 030
     Dates: start: 19990701

REACTIONS (8)
  - FATIGUE [None]
  - MULTIPLE SCLEROSIS RELAPSE [None]
  - COGNITIVE DISORDER [None]
  - PAIN IN EXTREMITY [None]
  - MENTAL IMPAIRMENT [None]
  - WEIGHT INCREASED [None]
  - MENOPAUSAL SYMPTOMS [None]
  - VOMITING [None]
